FAERS Safety Report 16745370 (Version 1)
Quarter: 2019Q3

REPORT INFORMATION
  Report Type: Spontaneous
  Country: US (occurrence: US)
  Receive Date: 20190827
  Receipt Date: 20190827
  Transmission Date: 20191005
  Serious: No
  Sender: FDA-Public Use
  Company Number: US-HIKMA PHARMACEUTICALS USA INC.-US-H14001-19-01358

PATIENT
  Age: 64 Year
  Sex: Female
  Weight: 74.84 kg

DRUGS (3)
  1. METHOTREXATE. [Suspect]
     Active Substance: METHOTREXATE
     Indication: PRODUCT USED FOR UNKNOWN INDICATION
     Route: 065
  2. XELJANZ XR [Suspect]
     Active Substance: TOFACITINIB CITRATE
     Indication: ARTHRITIS
     Route: 048
     Dates: start: 201806, end: 20181207
  3. METHOTREXATE. [Suspect]
     Active Substance: METHOTREXATE
     Route: 065

REACTIONS (8)
  - Rash papular [Recovering/Resolving]
  - Blister [Recovering/Resolving]
  - Feeling hot [Recovering/Resolving]
  - Feeling abnormal [Unknown]
  - Product dose omission [Unknown]
  - Liver function test abnormal [Unknown]
  - Rash erythematous [Recovering/Resolving]
  - Pain [Recovering/Resolving]

NARRATIVE: CASE EVENT DATE: 201806
